FAERS Safety Report 13149847 (Version 1)
Quarter: 2017Q1

REPORT INFORMATION
  Report Type: Spontaneous
  Country: JP (occurrence: JP)
  Receive Date: 20170125
  Receipt Date: 20170125
  Transmission Date: 20170428
  Serious: Yes (Other)
  Sender: FDA-Public Use
  Company Number: JP-MALLINCKRODT-T201401004

PATIENT
  Age: 72 Year
  Sex: Male

DRUGS (17)
  1. CALONAL [Concomitant]
     Active Substance: ACETAMINOPHEN
     Dosage: 1800 MG, UNK
     Dates: start: 20130609, end: 20140420
  2. PANTOSIN [Concomitant]
     Active Substance: PANTETHINE
     Dosage: 300 MG, UNK
     Route: 048
     Dates: start: 20130815, end: 20140420
  3. METHADOSE [Suspect]
     Active Substance: METHADONE HYDROCHLORIDE
     Dosage: 5 MG, (15 MG DAILY DOSE)
     Route: 048
     Dates: start: 20131224, end: 20140305
  4. NEUTROGIN [Concomitant]
     Active Substance: LENOGRASTIM
     Dosage: 100 ?G, UNK
     Route: 051
     Dates: start: 20131210, end: 20131218
  5. GEMZAR [Concomitant]
     Active Substance: GEMCITABINE HYDROCHLORIDE
     Dosage: 1300 MG, UNK
     Route: 051
     Dates: start: 20131213
  6. METHADOSE [Suspect]
     Active Substance: METHADONE HYDROCHLORIDE
     Dosage: 5 MG, (20 MG DAILY DOSE)
     Route: 048
     Dates: start: 20140306, end: 20140421
  7. OXYCONTIN [Concomitant]
     Active Substance: OXYCODONE HYDROCHLORIDE
     Dosage: 40 MG, UNK
     Route: 048
     Dates: end: 20131213
  8. CYMBALTA [Suspect]
     Active Substance: DULOXETINE HYDROCHLORIDE
     Dosage: (40 MG DAILY DOSE)
     Route: 048
     Dates: start: 20131225, end: 20131228
  9. OXYCONTIN [Concomitant]
     Active Substance: OXYCODONE HYDROCHLORIDE
     Dosage: 20 MG, UNK
     Route: 048
     Dates: start: 20131214, end: 20131216
  10. MAGMITT [Concomitant]
     Active Substance: MAGNESIUM OXIDE
     Dosage: 990 MG, UNK
     Route: 048
     Dates: start: 20130815, end: 20140420
  11. METHADOSE [Suspect]
     Active Substance: METHADONE HYDROCHLORIDE
     Indication: CANCER PAIN
     Dosage: 5 MG, (10 MG DAILY DOSE)
     Route: 048
     Dates: start: 20131210, end: 20131216
  12. METHADOSE [Suspect]
     Active Substance: METHADONE HYDROCHLORIDE
     Dosage: 10 MG, (20 MG DAILY DOSE)
     Route: 048
     Dates: start: 20131217, end: 20131224
  13. CYMBALTA [Suspect]
     Active Substance: DULOXETINE HYDROCHLORIDE
     Indication: ANALGESIC THERAPY
     Dosage: (60 MG DAILY DOSE)
     Route: 048
     Dates: start: 20131027, end: 20131224
  14. CYMBALTA [Suspect]
     Active Substance: DULOXETINE HYDROCHLORIDE
     Dosage: (20 MG DAILY DOSE)
     Route: 048
     Dates: start: 20131229, end: 20131231
  15. OXINORM [Concomitant]
     Active Substance: OXYCODONE HYDROCHLORIDE
     Dosage: 2.5 MG, PRN
     Route: 048
     Dates: start: 20131209
  16. TAKEPRON [Concomitant]
     Active Substance: LANSOPRAZOLE
     Dosage: 30 MG, UNK
     Route: 048
     Dates: start: 20130609, end: 20140420
  17. ONETAXOTERE [Concomitant]
     Active Substance: DOCETAXEL
     Dosage: 70 MG, UNK
     Route: 051
     Dates: start: 20131213

REACTIONS (5)
  - Constipation [Recovered/Resolved]
  - Ileus [Recovered/Resolved]
  - Vomiting [Recovered/Resolved]
  - Nausea [Recovered/Resolved]
  - Somnolence [Recovered/Resolved]

NARRATIVE: CASE EVENT DATE: 20131224
